FAERS Safety Report 20724426 (Version 1)
Quarter: 2022Q2

REPORT INFORMATION
  Report Type: Spontaneous
  Country: US (occurrence: US)
  Receive Date: 20220419
  Receipt Date: 20220419
  Transmission Date: 20220721
  Serious: Yes (Disabling)
  Sender: FDA-Public Use
  Company Number: US-SANOFI-00926046

PATIENT
  Age: 68 Year
  Sex: Male

DRUGS (1)
  1. INSULIN GLARGINE [Suspect]
     Active Substance: INSULIN GLARGINE
     Indication: Type 2 diabetes mellitus
     Dosage: 1-5 UNITS PER DAY , QD
     Route: 058
     Dates: start: 202201

REACTIONS (1)
  - Hypoacusis [Not Recovered/Not Resolved]
